FAERS Safety Report 5200479-1 (Version None)
Quarter: 2006Q4

REPORT INFORMATION
  Report Type: 
  Country: None (occurrence: None)
  Receive Date: 20061016
  Receipt Date: 20060821
  Transmission Date: 20070319
  Serious: No
  Sender: FDA-Public Use
  Company Number: 2006SP003077

PATIENT
  Age: 60 Year
  Sex: Male

DRUGS (5)
  1. LUNESTA [Suspect]
     Indication: INSOMNIA
     Dosage: ORAL
     Route: 048
     Dates: start: 20050601, end: 20050801
  2. OXYCODONE HCL [Concomitant]
  3. NEURONTIN [Concomitant]
  4. COREG [Concomitant]
  5. LISINOPRIL [Concomitant]

REACTIONS (1)
  - HALLUCINATION [None]
